FAERS Safety Report 5249475-9 (Version None)
Quarter: 2007Q1

REPORT INFORMATION
  Report Type: 
  Country: None (occurrence: None)
  Receive Date: 20070228
  Receipt Date: 20061208
  Transmission Date: 20070707
  Serious: No
  Sender: FDA-Public Use
  Company Number: US-GLAXOSMITHKLINE-A0628116A

PATIENT
  Age: 36 Year
  Sex: Male
  Weight: 90.9 kg

DRUGS (2)
  1. VALTREX [Suspect]
     Indication: DRUG USE FOR UNKNOWN INDICATION
     Route: 048
     Dates: start: 20061119, end: 20061119
  2. NO CONCURRENT MEDICATION [Concomitant]

REACTIONS (4)
  - DRUG ADMINISTRATION ERROR [None]
  - ERYTHEMA [None]
  - JOINT SWELLING [None]
  - SWELLING FACE [None]
